FAERS Safety Report 7464055-2 (Version None)
Quarter: 2011Q2

REPORT INFORMATION
  Report Type: 
  Country: None (occurrence: None)
  Receive Date: 20110506
  Receipt Date: 20110412
  Transmission Date: 20111010
  Serious: Yes (Other)
  Sender: FDA-Public Use
  Company Number: PHHY2011US36003

PATIENT
  Sex: Female

DRUGS (6)
  1. GLUCOVANCE [Concomitant]
  2. FLEXERIL [Concomitant]
  3. DIOVAN [Suspect]
     Dosage: 80 MG, QD
  4. LEVEMIR [Concomitant]
  5. JANUVIA [Concomitant]
  6. ZYACT [Concomitant]

REACTIONS (3)
  - STRESS [None]
  - WRONG TECHNIQUE IN DRUG USAGE PROCESS [None]
  - CEREBROVASCULAR ACCIDENT [None]
